FAERS Safety Report 17396442 (Version 1)
Quarter: 2020Q1

REPORT INFORMATION
  Report Type: Spontaneous
  Country: US (occurrence: US)
  Receive Date: 20200207
  Receipt Date: 20200207
  Transmission Date: 20200409
  Serious: No
  Sender: FDA-Public Use
  Company Number: None

PATIENT
  Sex: Male
  Weight: 140.26 kg

DRUGS (5)
  1. ALLOPURINOL. [Concomitant]
     Active Substance: ALLOPURINOL
  2. INDOMETHACIN. [Concomitant]
     Active Substance: INDOMETHACIN
  3. MEKTOVI [Suspect]
     Active Substance: BINIMETINIB
     Route: 048
     Dates: start: 20190513, end: 20200207
  4. IBUPROFEN. [Concomitant]
     Active Substance: IBUPROFEN
  5. BRAFTOVI [Suspect]
     Active Substance: ENCORAFENIB
     Route: 048
     Dates: start: 20190513, end: 20200207

REACTIONS (1)
  - Disease progression [None]
